FAERS Safety Report 4748972-X (Version None)
Quarter: 2005Q3

REPORT INFORMATION
  Report Type: 
  Country: None (occurrence: None)
  Receive Date: 20050819
  Receipt Date: 20050808
  Transmission Date: 20060218
  Serious: Yes (Hospitalization)
  Sender: FDA-Public Use
  Company Number: US-MERCK-0508USA01836

PATIENT
  Age: 47 Year
  Sex: Female

DRUGS (1)
  1. VIOXX [Suspect]
     Route: 048

REACTIONS (7)
  - CHEST PAIN [None]
  - CHILLS [None]
  - CONSTIPATION [None]
  - COUGH [None]
  - OEDEMA PERIPHERAL [None]
  - PYREXIA [None]
  - SPUTUM DISCOLOURED [None]
